FAERS Safety Report 10255924 (Version 1)
Quarter: 2014Q2

REPORT INFORMATION
  Report Type: Spontaneous
  Country: US (occurrence: US)
  Receive Date: 20140624
  Receipt Date: 20140624
  Transmission Date: 20141212
  Serious: Yes (Other)
  Sender: FDA-Public Use
  Company Number: US-GLAXOSMITHKLINE-A1077684A

PATIENT
  Age: 51 Year
  Sex: Female

DRUGS (5)
  1. ADVAIR [Suspect]
     Indication: CHRONIC OBSTRUCTIVE PULMONARY DISEASE
     Route: 055
     Dates: start: 201310
  2. ALBUTEROL [Suspect]
     Indication: CHRONIC OBSTRUCTIVE PULMONARY DISEASE
     Route: 055
     Dates: start: 201310
  3. RADIATION THERAPY [Suspect]
  4. LISINOPRIL [Concomitant]
  5. CITALOPRAM [Concomitant]

REACTIONS (2)
  - Laryngeal cancer [Not Recovered/Not Resolved]
  - Dry throat [Not Recovered/Not Resolved]
